FAERS Safety Report 5861928-9 (Version None)
Quarter: 2008Q3

REPORT INFORMATION
  Report Type: 
  Country: None (occurrence: None)
  Receive Date: 20080827
  Receipt Date: 20080715
  Transmission Date: 20090109
  Serious: No
  Sender: FDA-Public Use
  Company Number: US-ABBOTT-08P-163-0462561-00

PATIENT
  Sex: Female

DRUGS (4)
  1. NIASPAN [Suspect]
     Indication: BLOOD CHOLESTEROL INCREASED
     Route: 048
     Dates: start: 20080629
  2. XALATAN [Concomitant]
     Indication: GLAUCOMA
     Dosage: EYE GTTS
  3. OMEGA 3 WITH DHA [Concomitant]
     Indication: DRUG USE FOR UNKNOWN INDICATION
  4. ORGANIC FLAX SEED WITH HIGH LIGNAME OIL [Concomitant]
     Indication: DRUG USE FOR UNKNOWN INDICATION

REACTIONS (1)
  - MUSCLE SPASMS [None]
